FAERS Safety Report 8534219-5 (Version None)
Quarter: 2012Q3

REPORT INFORMATION
  Report Type: 
  Country: None (occurrence: None)
  Receive Date: 20120711
  Receipt Date: 20120626
  Transmission Date: 20120928
  Serious: Yes (Hospitalization)
  Sender: FDA-Public Use
  Company Number: 1339353

PATIENT
  Age: 61 Year
  Sex: Female

DRUGS (6)
  1. VANCOMYCIN HYDROCHLORIDE [Concomitant]
  2. CYTARABINE [Suspect]
     Indication: CHEMOTHERAPY
  3. MELPHALAN HYDROCHLORIDE [Concomitant]
  4. CARMUSTINE [Concomitant]
  5. ETOPOSIDE [Concomitant]
  6. CEFEPIME HYDROCHLORIDE [Concomitant]

REACTIONS (15)
  - EPIDERMAL NECROSIS [None]
  - RASH PUSTULAR [None]
  - SENSORIMOTOR DISORDER [None]
  - STEM CELL TRANSPLANT [None]
  - RENAL TUBULAR NECROSIS [None]
  - HAEMODIALYSIS [None]
  - PYREXIA [None]
  - NAUSEA [None]
  - ERYTHEMA [None]
  - BLISTER [None]
  - ORAL HERPES [None]
  - MUCOSAL INFLAMMATION [None]
  - NERVOUS SYSTEM DISORDER [None]
  - RENAL FAILURE ACUTE [None]
  - MENTAL DISORDER [None]
